FAERS Safety Report 21274084 (Version 2)
Quarter: 2022Q3

REPORT INFORMATION
  Report Type: Spontaneous
  Country: US (occurrence: US)
  Receive Date: 20220831
  Receipt Date: 20220831
  Transmission Date: 20221026
  Serious: Yes (Other)
  Sender: FDA-Public Use
  Company Number: US-CURIUM-2022000591

PATIENT
  Age: 33 Year
  Sex: Female

DRUGS (1)
  1. IODINE I-131 [Suspect]
     Active Substance: IODINE I-131
     Indication: Basedow^s disease
     Route: 065

REACTIONS (1)
  - Endocrine ophthalmopathy [Unknown]
